FAERS Safety Report 22379213 (Version 1)
Quarter: 2023Q2

REPORT INFORMATION
  Report Type: Spontaneous
  Country: GB (occurrence: GB)
  Receive Date: 20230529
  Receipt Date: 20230529
  Transmission Date: 20230722
  Serious: Yes (Other)
  Sender: FDA-Public Use
  Company Number: GB-SUN PHARMACEUTICAL INDUSTRIES LTD-2023RR-390544

PATIENT
  Age: 61 Year
  Sex: Female
  Weight: 90 kg

DRUGS (9)
  1. LANSOPRAZOLE [Suspect]
     Active Substance: LANSOPRAZOLE
     Indication: Abdominal pain
     Dosage: UNK
     Route: 048
  2. AMITRIPTYLINE [Concomitant]
     Active Substance: AMITRIPTYLINE
     Indication: Neuralgia
     Dosage: 30 MILLIGRAM, 1 DOSE, AT NIGHT
     Route: 065
     Dates: start: 20230316
  3. ATORVASTATIN [Concomitant]
     Active Substance: ATORVASTATIN
     Indication: Blood cholesterol increased
     Dosage: 20 MILLIGRAM, 1 DOSE
     Route: 065
     Dates: start: 20230222
  4. EMPAGLIFLOZIN [Concomitant]
     Active Substance: EMPAGLIFLOZIN
     Indication: Diabetes mellitus
     Dosage: 10 MILLIGRAM, 1 DOSE, NOTES FOR PATIENT: IF YOU BECOME SUDDENLY UNWELL WITH FEVER OR FEVERISH ILLN
     Route: 065
     Dates: start: 20230328
  5. FERROUS FUMARATE [Concomitant]
     Active Substance: FERROUS FUMARATE
     Indication: Anaemia
     Dosage: 210 MILLIGRAM, 2 DOSE
     Route: 065
     Dates: start: 20230413
  6. GLICLAZIDE [Concomitant]
     Active Substance: GLICLAZIDE
     Indication: Diabetes mellitus
     Dosage: 80 MILLIGRAM, 2 DOSE
     Route: 065
     Dates: start: 20230502
  7. GLUCOPHAGE XR [Concomitant]
     Active Substance: METFORMIN HYDROCHLORIDE
     Indication: Diabetes mellitus
     Dosage: 1000 MILLIGRAM, 2 DOSE
     Route: 065
     Dates: start: 20230330
  8. PROTOPIC [Concomitant]
     Active Substance: TACROLIMUS
     Indication: Product used for unknown indication
     Dosage: DAILY AS REQUESTED WHEN REQUIRED FOR 6 MONTHS
     Route: 065
     Dates: start: 20230414
  9. SULFASALAZINE [Concomitant]
     Active Substance: SULFASALAZINE
     Indication: Psoriatic arthropathy
     Dosage: 1500 MILLIGRAM, 2 DOSE
     Route: 065
     Dates: start: 20230222

REACTIONS (1)
  - Hypomagnesaemia [Recovering/Resolving]

NARRATIVE: CASE EVENT DATE: 20230429
